FAERS Safety Report 18566001 (Version 1)
Quarter: 2020Q4

REPORT INFORMATION
  Report Type: Spontaneous
  Country: NL (occurrence: NL)
  Receive Date: 20201201
  Receipt Date: 20201201
  Transmission Date: 20210114
  Serious: Yes (Life-Threatening)
  Sender: FDA-Public Use
  Company Number: NVSC2020NL319531

PATIENT
  Sex: Male
  Weight: 95 kg

DRUGS (6)
  1. CYTARABINE. [Suspect]
     Active Substance: CYTARABINE
     Indication: PRODUCT USED FOR UNKNOWN INDICATION
     Dosage: 444MG (444MG)
     Route: 065
     Dates: start: 20201112
  2. MELFALAN [Suspect]
     Active Substance: MELPHALAN
     Indication: HODGKIN^S DISEASE
     Dosage: 311MG (311MG)
     Route: 065
     Dates: start: 20201112
  3. EPOSIN [Suspect]
     Active Substance: ETOPOSIDE
     Indication: PRODUCT USED FOR UNKNOWN INDICATION
     Dosage: UNK (222)
     Route: 065
     Dates: start: 20201112
  4. CARMUSTINE. [Suspect]
     Active Substance: CARMUSTINE
     Indication: HODGKIN^S DISEASE
     Dosage: UNK (666)
     Route: 065
     Dates: start: 20201112
  5. CIPROFLOXACIN. [Suspect]
     Active Substance: CIPROFLOXACIN
     Indication: NEUTROPENIA
     Dosage: 1 DF,12 (2X PER DAG 1 STUK)
     Route: 065
     Dates: start: 20201112
  6. FLUCONAZOL [Suspect]
     Active Substance: FLUCONAZOLE
     Indication: NEUTROPENIA
     Dosage: 1 DF,QD (1X PER DAG 1 STUK)
     Route: 065
     Dates: start: 20201112, end: 20201119

REACTIONS (1)
  - Epilepsy [Recovered/Resolved]

NARRATIVE: CASE EVENT DATE: 20201118
